FAERS Safety Report 6149624-4 (Version None)
Quarter: 2009Q2

REPORT INFORMATION
  Report Type: 
  Country: None (occurrence: None)
  Receive Date: 20090406
  Receipt Date: 20090406
  Transmission Date: 20091009
  Serious: Yes (Other)
  Sender: FDA-Public Use
  Company Number: None

PATIENT
  Age: 46 Year
  Sex: Male
  Weight: 74.8435 kg

DRUGS (1)
  1. SIMCOR [Suspect]
     Indication: UNEVALUABLE EVENT
     Dosage: 2 DAILY OTHER
     Route: 050
     Dates: start: 20081215, end: 20090402

REACTIONS (5)
  - DYSKINESIA [None]
  - ERYTHEMA [None]
  - FLUSHING [None]
  - IRRITABILITY [None]
  - PRURITUS [None]
